FAERS Safety Report 13292485 (Version 1)
Quarter: 2017Q1

REPORT INFORMATION
  Report Type: Spontaneous
  Country: US (occurrence: US)
  Receive Date: 20170303
  Receipt Date: 20170303
  Transmission Date: 20170428
  Serious: No
  Sender: FDA-Public Use
  Company Number: None

PATIENT
  Age: 63 Year
  Sex: Female

DRUGS (3)
  1. IMATINIB MES TAB 100MG [Suspect]
     Active Substance: IMATINIB MESYLATE
     Indication: ATRIAL FLUTTER
  2. IMATINIB MES TAB 100MG [Suspect]
     Active Substance: IMATINIB MESYLATE
     Indication: CHRONIC MYELOID LEUKAEMIA (IN REMISSION)
  3. IMATINIB MES TAB 100MG [Suspect]
     Active Substance: IMATINIB MESYLATE
     Indication: ATRIAL FIBRILLATION

REACTIONS (4)
  - Atrial fibrillation [None]
  - Diarrhoea [None]
  - Flatulence [None]
  - Fatigue [None]

NARRATIVE: CASE EVENT DATE: 20140301
